FAERS Safety Report 21205782 (Version 2)
Quarter: 2022Q3

REPORT INFORMATION
  Report Type: Spontaneous
  Country: JP (occurrence: JP)
  Receive Date: 20220812
  Receipt Date: 20220817
  Transmission Date: 20221027
  Serious: Yes (Hospitalization, Other)
  Sender: FDA-Public Use
  Company Number: JP-ASTELLAS-2016US024799

PATIENT
  Age: 88 Year
  Sex: Female
  Weight: 37 kg

DRUGS (10)
  1. BENDAMUSTINE HYDROCHLORIDE [Suspect]
     Active Substance: BENDAMUSTINE HYDROCHLORIDE
     Indication: B-cell lymphoma
     Dosage: 60 MG/M2 DAILY;  (CYCLIC)
     Route: 041
     Dates: start: 20150109, end: 20150110
  2. BENDAMUSTINE HYDROCHLORIDE [Suspect]
     Active Substance: BENDAMUSTINE HYDROCHLORIDE
     Dosage: 60 MG/M2 DAILY;  (CYCLIC)
     Route: 041
     Dates: start: 20150204, end: 20150205
  3. BENDAMUSTINE HYDROCHLORIDE [Suspect]
     Active Substance: BENDAMUSTINE HYDROCHLORIDE
     Dosage: 60 MG/M2 DAILY; (CYCLIC)
     Route: 041
     Dates: start: 20150226, end: 20150227
  4. RITUXAN [Suspect]
     Active Substance: RITUXIMAB
     Indication: B-cell lymphoma
     Dosage: 375 MG/M2 DAILY; (CYCLIC)
     Route: 041
     Dates: start: 20150109, end: 20150109
  5. RITUXAN [Suspect]
     Active Substance: RITUXIMAB
     Dosage: 375 MG/M2 DAILY;  (CYCLIC)
     Route: 041
     Dates: start: 20150204, end: 20150204
  6. RITUXAN [Suspect]
     Active Substance: RITUXIMAB
     Dosage: 375 MG/M2 DAILY;  (CYCLIC)
     Route: 041
     Dates: start: 20150226, end: 20150226
  7. VALGANCICLOVIR [Suspect]
     Active Substance: VALGANCICLOVIR
     Indication: Cytomegalovirus chorioretinitis
     Route: 065
     Dates: start: 20150427
  8. VALGANCICLOVIR [Suspect]
     Active Substance: VALGANCICLOVIR
     Route: 048
     Dates: start: 20150519
  9. VALGANCICLOVIR [Suspect]
     Active Substance: VALGANCICLOVIR
     Route: 048
     Dates: start: 20151214
  10. VALGANCICLOVIR [Suspect]
     Active Substance: VALGANCICLOVIR
     Route: 048
     Dates: start: 20160509

REACTIONS (6)
  - Pancytopenia [Not Recovered/Not Resolved]
  - Cytomegalovirus chorioretinitis [Recovered/Resolved]
  - Lymphopenia [Not Recovered/Not Resolved]
  - Abdominal pain [Recovered/Resolved]
  - Prescribed underdose [Unknown]
  - Off label use [Unknown]

NARRATIVE: CASE EVENT DATE: 20151013
